FAERS Safety Report 10959783 (Version 1)
Quarter: 2015Q1

REPORT INFORMATION
  Report Type: Spontaneous
  Country: US (occurrence: None)
  Receive Date: 20150326
  Receipt Date: 20150326
  Transmission Date: 20150721
  Serious: Yes (Death)
  Sender: FDA-Public Use
  Company Number: None

PATIENT
  Age: 51 Year
  Sex: Male
  Weight: 80.8 kg

DRUGS (2)
  1. BLINCYTO [Suspect]
     Active Substance: BLINATUMOMAB
     Indication: ACUTE LYMPHOCYTIC LEUKAEMIA
     Dosage: BLINATUMOMAB
     Route: 042
     Dates: start: 20150114, end: 20150210
  2. BLINCYTO [Suspect]
     Active Substance: BLINATUMOMAB
     Dosage: BLINATUMOMAB
     Route: 042
     Dates: start: 20150114, end: 20150210

REACTIONS (8)
  - Dyspnoea [None]
  - Malignant neoplasm progression [None]
  - Gastrointestinal haemorrhage [None]
  - Enterococcal infection [None]
  - Small intestinal obstruction [None]
  - Blood lactic acid increased [None]
  - Leukaemia [None]
  - Nodule [None]

NARRATIVE: CASE EVENT DATE: 20150210
